FAERS Safety Report 7775555-X (Version None)
Quarter: 2011Q3

REPORT INFORMATION
  Report Type: 
  Country: None (occurrence: None)
  Receive Date: 20110923
  Receipt Date: 20110914
  Transmission Date: 20111222
  Serious: Yes (Hospitalization)
  Sender: FDA-Public Use
  Company Number: CA-JNJFOC-20110906876

PATIENT
  Sex: Female

DRUGS (1)
  1. REMICADE [Suspect]
     Indication: PSORIASIS
     Dosage: DOSE STRENGTH 100MG/VIAL
     Route: 042
     Dates: start: 20110830, end: 20110830

REACTIONS (4)
  - INFARCTION [None]
  - ARRHYTHMIA [None]
  - CEREBROVASCULAR ACCIDENT [None]
  - VIITH NERVE PARALYSIS [None]
